FAERS Safety Report 9396914 (Version 1)
Quarter: 2013Q3

REPORT INFORMATION
  Report Type: Other
  Country: US (occurrence: US)
  Receive Date: 20130712
  Receipt Date: 20130712
  Transmission Date: 20140515
  Serious: Yes (Death)
  Sender: FDA-Public Use
  Company Number: US-SHIRE-ALL1-2013-04647

PATIENT
  Sex: Male

DRUGS (1)
  1. FOSRENOL [Suspect]
     Indication: PRODUCT USED FOR UNKNOWN INDICATION
     Dosage: 9000 MG, OTHER (1000 MG 9 PER DAY)
     Route: 048
     Dates: start: 201301

REACTIONS (2)
  - Death [Fatal]
  - Prescribed overdose [Not Recovered/Not Resolved]
